FAERS Safety Report 13370456 (Version 1)
Quarter: 2017Q1

REPORT INFORMATION
  Report Type: Spontaneous
  Country: US (occurrence: US)
  Receive Date: 20170324
  Receipt Date: 20170324
  Transmission Date: 20170429
  Serious: No
  Sender: FDA-Public Use
  Company Number: US-ROCHE-1506755

PATIENT
  Age: 86 Year
  Sex: Male
  Weight: 95 kg

DRUGS (10)
  1. HYTRIN [Concomitant]
     Active Substance: TERAZOSIN HYDROCHLORIDE
     Route: 065
  2. KERLONE [Concomitant]
     Active Substance: BETAXOLOL HYDROCHLORIDE
  3. NORVASC [Concomitant]
     Active Substance: AMLODIPINE BESYLATE
     Indication: HYPERTENSION
     Route: 065
     Dates: start: 1995
  4. AMARYL [Concomitant]
     Active Substance: GLIMEPIRIDE
     Route: 048
  5. HUMULIN 70/30 [Concomitant]
     Active Substance: INSULIN HUMAN
     Dosage: 33 UNITS
     Route: 065
  6. ASPIRIN. [Concomitant]
     Active Substance: ASPIRIN
     Route: 065
  7. XOLAIR [Suspect]
     Active Substance: OMALIZUMAB
     Indication: ANGIOEDEMA
     Route: 065
     Dates: start: 201409
  8. LOMOTIL (UNITED STATES) [Concomitant]
     Indication: DIARRHOEA
     Dosage: LAST DOSE 6 OR 7 WEEKS AGO
     Route: 065
  9. OXYBUTYNIN [Concomitant]
     Active Substance: OXYBUTYNIN
     Route: 065
  10. MECLIZINE [Concomitant]
     Active Substance: MECLIZINE HYDROCHLORIDE
     Route: 065

REACTIONS (2)
  - Drug effect decreased [Unknown]
  - Angioedema [Not Recovered/Not Resolved]
